FAERS Safety Report 4418714-6 (Version None)
Quarter: 2004Q3

REPORT INFORMATION
  Report Type: 
  Country: None (occurrence: None)
  Receive Date: 20040809
  Receipt Date: 20031223
  Transmission Date: 20050211
  Serious: Yes (Disabling)
  Sender: FDA-Public Use
  Company Number: US-GLAXOSMITHKLINE-A0444129A

PATIENT
  Age: 36 Year
  Sex: Male
  Weight: 111.4 kg

DRUGS (2)
  1. PAXIL [Suspect]
     Dosage: 40MG PER DAY
     Route: 048
     Dates: start: 20011201
  2. NO CONCURRENT MEDICATION [Concomitant]

REACTIONS (1)
  - EJACULATION FAILURE [None]
